FAERS Safety Report 4451991-4 (Version None)
Quarter: 2004Q3

REPORT INFORMATION
  Report Type: 
  Country: None (occurrence: None)
  Receive Date: 20040913
  Receipt Date: 20040701
  Transmission Date: 20050211
  Serious: No
  Sender: FDA-Public Use
  Company Number: 2004-BP-05359BP (0)

PATIENT
  Age: 28 Year
  Sex: Male
  Weight: 125.1 kg

DRUGS (5)
  1. SPIRIVA [Suspect]
     Indication: CHRONIC OBSTRUCTIVE AIRWAYS DISEASE
     Dosage: 18 MCG (18 MCG, 18 MCG ONCE DAILY), IH
     Route: 055
     Dates: end: 20040611
  2. DDAVP [Concomitant]
  3. ADVAIR (SERETIDE MITE) [Concomitant]
  4. BIAXIN [Concomitant]
  5. ALBUTEROL [Concomitant]

REACTIONS (1)
  - URTICARIA [None]
